FAERS Safety Report 4299435-X (Version None)
Quarter: 2004Q1

REPORT INFORMATION
  Report Type: 
  Country: None (occurrence: None)
  Receive Date: 20040219
  Receipt Date: 20040212
  Transmission Date: 20041129
  Serious: Yes (Hospitalization)
  Sender: FDA-Public Use
  Company Number: WAES 0402CAN00058

PATIENT
  Age: 9 Year
  Sex: Female

DRUGS (3)
  1. AMPICILLIN [Suspect]
     Indication: NEPHROTIC SYNDROME
     Route: 042
  2. CEFOTAXIME SODIUM [Suspect]
     Indication: NEPHROTIC SYNDROME
     Route: 042
  3. STROMECTOL [Suspect]
     Indication: ACARODERMATITIS
     Route: 048

REACTIONS (2)
  - ANAPHYLACTIC REACTION [None]
  - INFUSION RELATED REACTION [None]
